FAERS Safety Report 24086165 (Version 2)
Quarter: 2024Q3

REPORT INFORMATION
  Report Type: Spontaneous
  Country: US (occurrence: US)
  Receive Date: 20240712
  Receipt Date: 20240828
  Transmission Date: 20241017
  Serious: Yes (Other)
  Sender: GLAXOSMITHKLINE
  Company Number: US-GSKCCFUS-Case-02049830_AE-113525

PATIENT

DRUGS (2)
  1. TRELEGY ELLIPTA [Suspect]
     Active Substance: FLUTICASONE FUROATE\UMECLIDINIUM BROMIDE\VILANTEROL TRIFENATATE
     Indication: Chronic obstructive pulmonary disease
     Dosage: UNK, 200MCGS/62.5MCGS
     Dates: start: 20240706
  2. TRELEGY ELLIPTA [Suspect]
     Active Substance: FLUTICASONE FUROATE\UMECLIDINIUM BROMIDE\VILANTEROL TRIFENATATE
     Indication: Emphysema

REACTIONS (7)
  - Choking [Unknown]
  - Dyspnoea [Recovering/Resolving]
  - Oropharyngeal pain [Unknown]
  - Extra dose administered [Unknown]
  - Incorrect dose administered [Unknown]
  - Product use in unapproved indication [Unknown]
  - Product complaint [Unknown]

NARRATIVE: CASE EVENT DATE: 20240706
